FAERS Safety Report 4690073-3 (Version None)
Quarter: 2005Q2

REPORT INFORMATION
  Report Type: 
  Country: None (occurrence: None)
  Receive Date: 20050614
  Receipt Date: 20050527
  Transmission Date: 20051028
  Serious: Yes (Other)
  Sender: FDA-Public Use
  Company Number: US135949

PATIENT
  Age: 73 Year
  Sex: Female
  Weight: 89 kg

DRUGS (7)
  1. ETANERCEPT [Suspect]
     Indication: RHEUMATOID ARTHRITIS
     Dosage: 25 MG, 2 IN 1 WEEKS, SC
     Route: 058
     Dates: start: 20010322, end: 20021003
  2. SULFASALAZINE [Suspect]
     Dosage: 3 G, 2 IN 1 DAYS, PO
     Route: 048
     Dates: start: 20010322, end: 20021003
  3. NISISCO (HYDROCHLOROTHIAZIDE, VALSARTAN) [Concomitant]
  4. PRAZOSIN GITS [Concomitant]
  5. BISOPROLOL FUMARATE [Concomitant]
  6. BROMAZEPAM [Concomitant]
  7. LORAZEPAM [Concomitant]

REACTIONS (16)
  - ARTHRALGIA [None]
  - AUTOIMMUNE DISORDER [None]
  - CHRONIC INFLAMMATORY DEMYELINATING POLYRADICULONEUROPATHY [None]
  - DEMYELINATION [None]
  - DIFFICULTY IN WALKING [None]
  - DYSAESTHESIA [None]
  - ELECTROMYOGRAM ABNORMAL [None]
  - ESSENTIAL TREMOR [None]
  - HYPOAESTHESIA [None]
  - HYPOREFLEXIA [None]
  - JOINT SWELLING [None]
  - MUSCULOSKELETAL STIFFNESS [None]
  - NERVE CONDUCTION STUDIES ABNORMAL [None]
  - POLYNEUROPATHY [None]
  - POSITIVE ROMBERGISM [None]
  - SENSORY DISTURBANCE [None]
